FAERS Safety Report 6080210-0 (Version None)
Quarter: 2009Q1

REPORT INFORMATION
  Report Type: 
  Country: None (occurrence: None)
  Receive Date: 20090217
  Receipt Date: 20090205
  Transmission Date: 20090719
  Serious: Yes (Other)
  Sender: FDA-Public Use
  Company Number: GB-SANOFI-SYNTHELABO-A01200815755

PATIENT
  Age: 60 Year
  Sex: Female

DRUGS (3)
  1. DEXAMETHASONE [Concomitant]
  2. ELOXATIN [Suspect]
     Indication: COLORECTAL CANCER
     Dosage: 250 MG
     Route: 041
     Dates: start: 20081023, end: 20081023
  3. CAPECITABINE [Suspect]
     Indication: COLORECTAL CANCER
     Dosage: 1800 MG

REACTIONS (6)
  - ANGINA PECTORIS [None]
  - BRADYCARDIA [None]
  - CHEST PAIN [None]
  - HYPOAESTHESIA [None]
  - LARYNGOSPASM [None]
  - MYOCARDIAL INFARCTION [None]
